APPROVED DRUG PRODUCT: ALUPENT
Active Ingredient: METAPROTERENOL SULFATE
Strength: 10MG/5ML
Dosage Form/Route: SYRUP;ORAL
Application: N017571 | Product #001
Applicant: BOEHRINGER INGELHEIM
Approved: Approved Prior to Jan 1, 1982 | RLD: No | RS: No | Type: DISCN